FAERS Safety Report 5263854-5 (Version None)
Quarter: 2007Q1

REPORT INFORMATION
  Report Type: 
  Country: None (occurrence: None)
  Receive Date: 20061213
  Receipt Date: 20041021
  Transmission Date: 20070707
  Serious: Yes (Other)
  Sender: FDA-Public Use
  Company Number: 2004UW05503

PATIENT
  Age: 88 Year
  Sex: Female
  Weight: 46.7205 kg

DRUGS (7)
  1. IRESSA [Suspect]
     Indication: ADENOCARCINOMA
     Dosage: 250 MG PO
     Route: 048
     Dates: start: 20010209
  2. IRESSA [Suspect]
     Indication: NON-SMALL CELL LUNG CANCER
     Dosage: 250 MG PO
     Route: 048
     Dates: start: 20010209
  3. FOSAMAX [Concomitant]
  4. VITAMIN D [Concomitant]
  5. GLYBURIDE [Concomitant]
  6. FORTEO [Concomitant]
  7. GUAIFENESIN [Concomitant]

REACTIONS (6)
  - BLOOD GLUCOSE DECREASED [None]
  - BLOOD GLUCOSE INCREASED [None]
  - BONE DENSITY DECREASED [None]
  - FLATULENCE [None]
  - LOWER RESPIRATORY TRACT INFECTION [None]
  - PHARYNGOLARYNGEAL PAIN [None]
